FAERS Safety Report 10269781 (Version 1)
Quarter: 2014Q2

REPORT INFORMATION
  Report Type: Spontaneous
  Country: IE (occurrence: None)
  Receive Date: 20140627
  Receipt Date: 20140627
  Transmission Date: 20141212
  Serious: Yes (Life-Threatening)
  Sender: FDA-Public Use
  Company Number: None

PATIENT
  Age: 31 Year
  Sex: Female
  Weight: 57 kg

DRUGS (1)
  1. CYCLIZINE/VALOID 10 OR 20ML [Suspect]
     Indication: NAUSEA
     Dosage: IV ADMINISTERED, ONCE DAILY, INTO A VEIN
     Route: 042
     Dates: start: 20140624, end: 20140624

REACTIONS (17)
  - Paraesthesia [None]
  - Hypoaesthesia [None]
  - Dry mouth [None]
  - Dyspnoea [None]
  - Muscle spasms [None]
  - Chest discomfort [None]
  - Palpitations [None]
  - Throat tightness [None]
  - Headache [None]
  - Neck pain [None]
  - Movement disorder [None]
  - Pain in extremity [None]
  - Back pain [None]
  - Nausea [None]
  - Dizziness [None]
  - Vision blurred [None]
  - Sleep disorder [None]
